FAERS Safety Report 15049544 (Version 1)
Quarter: 2018Q2

REPORT INFORMATION
  Report Type: Spontaneous
  Country: US (occurrence: US)
  Receive Date: 20180622
  Receipt Date: 20180622
  Transmission Date: 20180711
  Serious: Yes (Other)
  Sender: FDA-Public Use
  Company Number: US-BAYER-2018-114680

PATIENT
  Age: 24 Year
  Sex: Female

DRUGS (2)
  1. SKYLA [Suspect]
     Active Substance: LEVONORGESTREL
     Indication: CONTRACEPTION
     Dosage: 14 MCG/24HR, CONT
     Route: 015
     Dates: start: 20160122, end: 20180614
  2. METHOTREXATE. [Concomitant]
     Active Substance: METHOTREXATE
     Dosage: UNK

REACTIONS (5)
  - Drug ineffective [None]
  - Ectopic pregnancy with contraceptive device [None]
  - Abdominal pain [None]
  - Abdominal distension [None]
  - Genital haemorrhage [None]

NARRATIVE: CASE EVENT DATE: 20180322
